FAERS Safety Report 24022826 (Version 4)
Quarter: 2024Q2

REPORT INFORMATION
  Report Type: Report from Study
  Country: CN (occurrence: CN)
  Receive Date: 20240627
  Receipt Date: 20240628
  Transmission Date: 20240716
  Serious: No
  Sender: FDA-Public Use
  Company Number: CN-ROCHE-3317419

PATIENT
  Age: 65 Year
  Sex: Female
  Weight: 50.0 kg

DRUGS (5)
  1. ALECTINIB [Suspect]
     Active Substance: ALECTINIB
     Indication: Non-small cell lung cancer metastatic
     Route: 048
     Dates: start: 20210929
  2. ALECTINIB [Suspect]
     Active Substance: ALECTINIB
     Route: 048
     Dates: start: 20200926
  3. ZOLEDRONIC ACID [Concomitant]
     Active Substance: ZOLEDRONIC ACID
     Indication: Metastases to bone
     Route: 050
     Dates: start: 20230129, end: 20230129
  4. HEART TREASURE PILL [Concomitant]
     Indication: Sinus bradycardia
     Route: 048
     Dates: start: 20210928
  5. URSODIOL [Concomitant]
     Active Substance: URSODIOL
     Indication: Blood bilirubin
     Route: 048
     Dates: start: 20210927

REACTIONS (2)
  - Cough [Recovered/Resolved]
  - Blood bilirubin increased [Recovered/Resolved]

NARRATIVE: CASE EVENT DATE: 20221226
